FAERS Safety Report 7338143-5 (Version None)
Quarter: 2011Q1

REPORT INFORMATION
  Report Type: 
  Country: None (occurrence: None)
  Receive Date: 20110308
  Receipt Date: 20110223
  Transmission Date: 20110831
  Serious: Yes (Hospitalization, Other)
  Sender: FDA-Public Use
  Company Number: FR-ELI_LILLY_AND_COMPANY-FR201103000403

PATIENT
  Age: 72 Year
  Sex: Male

DRUGS (1)
  1. CYMBALTA [Suspect]
     Indication: NEUROPATHY PERIPHERAL
     Dosage: 60 MG, DAILY (1/D)
     Route: 048
     Dates: start: 20090417, end: 20090420

REACTIONS (11)
  - RASH PAPULAR [None]
  - INFLAMMATION [None]
  - CYTOLYTIC HEPATITIS [None]
  - HYPOKALAEMIA [None]
  - HYPOTENSION [None]
  - RENAL FAILURE [None]
  - ERYTHEMA [None]
  - METABOLIC ACIDOSIS [None]
  - CHOLESTASIS [None]
  - HYPONATRAEMIA [None]
  - PYREXIA [None]
